FAERS Safety Report 5929721-6 (Version None)
Quarter: 2008Q4

REPORT INFORMATION
  Report Type: 
  Country: None (occurrence: None)
  Receive Date: 20081021
  Receipt Date: 20081009
  Transmission Date: 20090506
  Serious: Yes (Hospitalization, Other)
  Sender: FDA-Public Use
  Company Number: 2008BI021348

PATIENT
  Age: 59 Year
  Sex: Female

DRUGS (3)
  1. AVONEX [Suspect]
     Indication: MULTIPLE SCLEROSIS
     Dosage: 30 UG;QW;IM, 30 UG;QW;IM
     Route: 030
     Dates: start: 20020930
  2. . [Concomitant]
  3. . [Concomitant]

REACTIONS (4)
  - CONVULSION [None]
  - DIABETIC FOOT [None]
  - LOCALISED INFECTION [None]
  - TOE AMPUTATION [None]
